FAERS Safety Report 11324988 (Version 1)
Quarter: 2015Q3

REPORT INFORMATION
  Report Type: Spontaneous
  Country: US (occurrence: US)
  Receive Date: 20150730
  Receipt Date: 20150730
  Transmission Date: 20151125
  Serious: No
  Sender: FDA-Public Use
  Company Number: US-SHIRE-US201509187

PATIENT
  Sex: Female
  Weight: 54.42 kg

DRUGS (4)
  1. LIALDA [Suspect]
     Active Substance: MESALAMINE
     Dosage: UNK (2 OR 4 TABLETS), 1X/DAY:QD
     Route: 048
  2. LIALDA [Suspect]
     Active Substance: MESALAMINE
     Indication: COLITIS ULCERATIVE
     Dosage: 4.8 G (4 TABLETS), 1X/DAY:QD
     Route: 048
  3. PRENATAL VITAMINS                  /07499601/ [Concomitant]
     Active Substance: VITAMINS
     Indication: SUPPLEMENTATION THERAPY
     Dosage: 1 DF, 1X/DAY:QD
     Route: 048
  4. ACIDOPHILUS                        /00079701/ [Concomitant]
     Indication: COLITIS ULCERATIVE
     Dosage: UNK (3 BILLION STRAIN), OTHER (2-6 A DAY)
     Route: 048

REACTIONS (4)
  - No adverse event [Not Recovered/Not Resolved]
  - Expired product administered [Not Recovered/Not Resolved]
  - Incorrect dose administered [Not Recovered/Not Resolved]
  - Product quality issue [Unknown]
